FAERS Safety Report 7965492-X (Version None)
Quarter: 2011Q4

REPORT INFORMATION
  Report Type: 
  Country: None (occurrence: None)
  Receive Date: 20111206
  Receipt Date: 20111206
  Transmission Date: 20120403
  Serious: Yes (Hospitalization)
  Sender: FDA-Public Use
  Company Number: None

PATIENT
  Sex: Female
  Weight: 93.6 kg

DRUGS (2)
  1. PACLITAXEL [Suspect]
     Dosage: 350 MG
     Dates: end: 20111116
  2. CARBOPLATIN [Suspect]
     Dosage: 750 MG
     Dates: end: 20111116

REACTIONS (10)
  - NEOPLASM RECURRENCE [None]
  - LETHARGY [None]
  - PSEUDOMONAS TEST POSITIVE [None]
  - OVARIAN CANCER [None]
  - PYREXIA [None]
  - PERIPANCREATIC FLUID COLLECTION [None]
  - CHEST PAIN [None]
  - INFUSION SITE THROMBOSIS [None]
  - ABSCESS [None]
  - BACK PAIN [None]
